FAERS Safety Report 15399168 (Version 2)
Quarter: 2018Q3

REPORT INFORMATION
  Report Type: Spontaneous
  Country: US (occurrence: US)
  Receive Date: 20180918
  Receipt Date: 20180920
  Transmission Date: 20181010
  Serious: Yes (Other)
  Sender: FDA-Public Use
  Company Number: US-GLAXOSMITHKLINE-US2018165487

PATIENT
  Age: 16 Year
  Sex: Female

DRUGS (1)
  1. BREO ELLIPTA [Suspect]
     Active Substance: FLUTICASONE FUROATE\VILANTEROL TRIFENATATE
     Indication: ASTHMA
     Dosage: 3 PUFF(S), SINGLE
     Route: 055
     Dates: start: 20180904, end: 20180904

REACTIONS (12)
  - Expired product administered [Recovered/Resolved]
  - Hypoaesthesia [Recovered/Resolved]
  - Hyperventilation [Recovering/Resolving]
  - Back pain [Recovered/Resolved]
  - Bruxism [Unknown]
  - Intentional product misuse [Unknown]
  - Seizure [Unknown]
  - Heart rate increased [Recovering/Resolving]
  - Hypertension [Recovering/Resolving]
  - Overdose [Unknown]
  - Prescription drug used without a prescription [Recovered/Resolved]
  - Chest pain [Recovered/Resolved]

NARRATIVE: CASE EVENT DATE: 20180904
